FAERS Safety Report 9057123 (Version 1)
Quarter: 2013Q1

REPORT INFORMATION
  Report Type: Spontaneous
  Country: US (occurrence: US)
  Receive Date: 20130131
  Receipt Date: 20130131
  Transmission Date: 20140127
  Serious: Yes (Hospitalization)
  Sender: FDA-Public Use
  Company Number: US-PFIZER INC-2013039232

PATIENT
  Age: 58 Year
  Sex: Female
  Weight: 49.43 kg

DRUGS (5)
  1. LYRICA [Suspect]
     Indication: NERVE INJURY
     Dosage: 75 MG, 3X/DAY
     Dates: end: 20121216
  2. EFFEXOR XR [Suspect]
     Indication: DEPRESSION
     Dosage: 37.5 MG, 3X/DAY
     Dates: end: 20121216
  3. HYDROCODONE [Suspect]
     Indication: PROCEDURAL PAIN
     Dosage: UNK, EVERY 4 HOURS
     Dates: start: 2004
  4. LOVASTATIN [Concomitant]
     Indication: HYPERTENSION
     Dosage: 10 MG, 1X/DAY
  5. BENAZEPRIL [Concomitant]
     Dosage: 20 MG, 1X/DAY

REACTIONS (3)
  - Angiopathy [Recovering/Resolving]
  - Fatigue [Recovering/Resolving]
  - Drug ineffective [Unknown]
